FAERS Safety Report 22655685 (Version 2)
Quarter: 2023Q2

REPORT INFORMATION
  Report Type: Spontaneous
  Country: CN (occurrence: CN)
  Receive Date: 20230629
  Receipt Date: 20230630
  Transmission Date: 20230722
  Serious: Yes (Hospitalization)
  Sender: FDA-Public Use
  Company Number: CN-009507513-2306CHN012437

PATIENT
  Age: 61 Year
  Sex: Male

DRUGS (6)
  1. KEYTRUDA [Suspect]
     Active Substance: PEMBROLIZUMAB
     Indication: Immunochemotherapy
     Dosage: 200 MILLIGRAM, FIRST CYCLE
     Dates: start: 20230522, end: 20230522
  2. KEYTRUDA [Suspect]
     Active Substance: PEMBROLIZUMAB
     Dosage: 200 MG, ONCE, SECOND CYCLE
     Route: 041
     Dates: start: 20230613, end: 20230613
  3. CARBOPLATIN [Suspect]
     Active Substance: CARBOPLATIN
     Dosage: 400 MG, FIRST CYCLE
     Dates: start: 20230522, end: 20230522
  4. CARBOPLATIN [Suspect]
     Active Substance: CARBOPLATIN
     Dosage: 400 MG, SECOND CYCLE (ABOVE REGIMEN CONTINUED)
     Dates: start: 20230613, end: 20230613
  5. PACLITAXEL [Suspect]
     Active Substance: PACLITAXEL
     Dosage: 400 MG, FIRST CYCLE
     Dates: start: 20230522, end: 20230522
  6. PACLITAXEL [Suspect]
     Active Substance: PACLITAXEL
     Dosage: 400 MG, SECOND CYCLE (THE ABOVE REGIMEN CONTINUED)
     Dates: start: 20230613, end: 20230613

REACTIONS (6)
  - Hospitalisation [Recovered/Resolved]
  - Face oedema [Recovered/Resolved]
  - Face oedema [Unknown]
  - Tumour pain [Unknown]
  - Eyelid oedema [Unknown]
  - Inappropriate schedule of product administration [Unknown]

NARRATIVE: CASE EVENT DATE: 20230501
